FAERS Safety Report 15543947 (Version 1)
Quarter: 2018Q4

REPORT INFORMATION
  Report Type: Report from Study
  Country: US (occurrence: US)
  Receive Date: 20181023
  Receipt Date: 20181023
  Transmission Date: 20190205
  Serious: Yes (Other)
  Sender: FDA-Public Use
  Company Number: US-GILEAD-2018-0369055

PATIENT
  Sex: Female

DRUGS (1)
  1. RANOLAZINE. [Suspect]
     Active Substance: RANOLAZINE
     Indication: ARTERIOSCLEROSIS CORONARY ARTERY
     Dosage: 500 MG, BID
     Route: 048

REACTIONS (3)
  - Angina pectoris [Not Recovered/Not Resolved]
  - Coronary artery disease [Not Recovered/Not Resolved]
  - Product use in unapproved indication [Not Recovered/Not Resolved]
